FAERS Safety Report 7413946-7 (Version None)
Quarter: 2011Q2

REPORT INFORMATION
  Report Type: 
  Country: None (occurrence: None)
  Receive Date: 20110414
  Receipt Date: 20091106
  Transmission Date: 20111010
  Serious: No
  Sender: FDA-Public Use
  Company Number: US-BIOGENIDEC-2009BI033615

PATIENT
  Sex: Female

DRUGS (1)
  1. TYSABRI [Suspect]
     Indication: MULTIPLE SCLEROSIS
     Route: 042
     Dates: start: 20090727, end: 20090901

REACTIONS (5)
  - ARTHRITIS [None]
  - DYSSTASIA [None]
  - MENISCUS LESION [None]
  - PAIN IN EXTREMITY [None]
  - SPINAL CORD DISORDER [None]
